FAERS Safety Report 14562148 (Version 1)
Quarter: 2018Q1

REPORT INFORMATION
  Report Type: Spontaneous
  Country: US (occurrence: US)
  Receive Date: 20180221
  Receipt Date: 20180221
  Transmission Date: 20180509
  Serious: Yes (Disabling)
  Sender: FDA-Public Use
  Company Number: None

PATIENT
  Age: 51 Year
  Sex: Male
  Weight: 135 kg

DRUGS (1)
  1. LARIAM [Suspect]
     Active Substance: MEFLOQUINE HYDROCHLORIDE
     Indication: MALARIA
     Dates: start: 19921001, end: 19930401

REACTIONS (6)
  - Diarrhoea [None]
  - Nausea [None]
  - Irritable bowel syndrome [None]
  - Vertigo [None]
  - Arthritis [None]
  - Dizziness [None]

NARRATIVE: CASE EVENT DATE: 19930301
